FAERS Safety Report 25225398 (Version 1)
Quarter: 2025Q2

REPORT INFORMATION
  Report Type: Spontaneous
  Country: GB (occurrence: GB)
  Receive Date: 20250422
  Receipt Date: 20250422
  Transmission Date: 20250716
  Serious: Yes (Other)
  Sender: B BRAUN
  Company Number: GB-B.Braun Medical Inc.-2175325

PATIENT
  Age: 75 Year
  Sex: Male
  Weight: 89 kg

DRUGS (27)
  1. ACETAMINOPHEN [Suspect]
     Active Substance: ACETAMINOPHEN
     Indication: Ill-defined disorder
     Dates: start: 20250404
  2. DARBEPOETIN ALFA [Concomitant]
     Active Substance: DARBEPOETIN ALFA
  3. PREGABALIN [Concomitant]
     Active Substance: PREGABALIN
  4. CYCLIZINE [Concomitant]
     Active Substance: CYCLIZINE
  5. CARBOCYSTEINE [Concomitant]
     Active Substance: CARBOCYSTEINE
  6. PYRIDOSTIGMINE BROMIDE [Concomitant]
     Active Substance: PYRIDOSTIGMINE BROMIDE
  7. 3M CAVILON ANTIFUNGAL [Concomitant]
     Active Substance: MICONAZOLE NITRATE
  8. BUDESONIDE\FORMOTEROL\GLYCOPYRRONIUM [Concomitant]
     Active Substance: BUDESONIDE\FORMOTEROL\GLYCOPYRRONIUM
  9. BUPRENORPHINE [Concomitant]
     Active Substance: BUPRENORPHINE
  10. LOPERAMIDE [Concomitant]
     Active Substance: LOPERAMIDE
  11. ZOPICLONE [Concomitant]
     Active Substance: ZOPICLONE
  12. TAMSULOSIN HYDROCHLORIDE [Concomitant]
     Active Substance: TAMSULOSIN HYDROCHLORIDE
  13. SERTRALINE [Concomitant]
     Active Substance: SERTRALINE HYDROCHLORIDE
  14. ALBUTEROL [Concomitant]
     Active Substance: ALBUTEROL
  15. MIRABEGRON [Concomitant]
     Active Substance: MIRABEGRON
  16. METHOTREXATE [Concomitant]
     Active Substance: METHOTREXATE
  17. LEVETIRACETAM [Concomitant]
     Active Substance: LEVETIRACETAM
  18. LANSOPRAZOLE [Concomitant]
     Active Substance: LANSOPRAZOLE
  19. GABAPENTIN [Concomitant]
     Active Substance: GABAPENTIN
  20. FUROSEMIDE [Concomitant]
     Active Substance: FUROSEMIDE
  21. FOLIC ACID [Concomitant]
     Active Substance: FOLIC ACID
  22. MINERAL OIL\PARAFFIN [Concomitant]
     Active Substance: MINERAL OIL\PARAFFIN
  23. CALCIUM CARBONATE [Concomitant]
     Active Substance: CALCIUM CARBONATE
  24. AMLODIPINE [Concomitant]
     Active Substance: AMLODIPINE BESYLATE
  25. ALENDRONIC ACID [Concomitant]
     Active Substance: ALENDRONIC ACID
  26. SANDO-K [Concomitant]
  27. AMOXICILLIN [Concomitant]
     Active Substance: AMOXICILLIN

REACTIONS (2)
  - Malaise [Unknown]
  - Drug hypersensitivity [Unknown]
